FAERS Safety Report 9802503 (Version 2)
Quarter: 2014Q1

REPORT INFORMATION
  Report Type: Report from Study
  Country: CL (occurrence: CL)
  Receive Date: 20140107
  Receipt Date: 20140131
  Transmission Date: 20141002
  Serious: Yes (Other)
  Sender: FDA-Public Use
  Company Number: CL-ROCHE-1329842

PATIENT
  Age: 60 Year
  Sex: Female
  Weight: 49.5 kg

DRUGS (2)
  1. XELODA [Suspect]
     Indication: COLON CANCER
     Dosage: 14-DAY-CYCLE, DATE OF LAST DOSE: 19/DEC/2013
     Route: 048
     Dates: start: 20131025, end: 20131226
  2. OXALIPLATIN [Suspect]
     Indication: COLON CANCER
     Dosage: DATE OF LAST DOSE: 06/DEC/2013
     Route: 042
     Dates: start: 20131025, end: 20131226

REACTIONS (2)
  - Carcinoembryonic antigen increased [Unknown]
  - Metastases to lung [Not Recovered/Not Resolved]
